FAERS Safety Report 4580002-5 (Version None)
Quarter: 2005Q1

REPORT INFORMATION
  Report Type: 
  Country: None (occurrence: None)
  Receive Date: 20050214
  Receipt Date: 20050203
  Transmission Date: 20050727
  Serious: Yes (Hospitalization)
  Sender: FDA-Public Use
  Company Number: FR-JNJFOC-20050201048

PATIENT
  Age: 57 Year
  Sex: Male

DRUGS (8)
  1. RISPERDAL [Suspect]
     Indication: SCHIZOPHRENIA
     Route: 049
  2. HALDOL DECANOAS [Suspect]
     Indication: SCHIZOPHRENIA
     Route: 030
  3. TERCIAN [Interacting]
     Route: 049
  4. TERCIAN [Interacting]
     Indication: SCHIZOPHRENIA
     Route: 049
  5. IMOVANE [Concomitant]
  6. TEGRETOL [Concomitant]
  7. PARKINANE [Concomitant]
     Dates: end: 20041207
  8. TEMESTA [Concomitant]

REACTIONS (4)
  - DRUG INTERACTION [None]
  - DYSSTASIA [None]
  - FALL [None]
  - HYPOTENSION [None]
